FAERS Safety Report 8099831-9 (Version None)
Quarter: 2012Q1

REPORT INFORMATION
  Report Type: 
  Country: None (occurrence: None)
  Receive Date: 20120129
  Receipt Date: 20111008
  Transmission Date: 20120608
  Serious: No
  Sender: FDA-Public Use
  Company Number: US-ABBOTT-11P-163-0862411-00

PATIENT
  Age: 35 Year
  Sex: Male

DRUGS (6)
  1. VICODIN [Concomitant]
     Indication: PAIN
     Dosage: PRN
  2. AMITRIPTYLINE HCL [Concomitant]
     Indication: INSOMNIA
  3. HUMIRA [Suspect]
     Indication: CROHN'S DISEASE
  4. SEROQUEL [Concomitant]
     Indication: INSOMNIA
     Dosage: AT NIGHT
  5. PRILOSEC [Concomitant]
     Indication: PRODUCT USED FOR UNKNOWN INDICATION
  6. AMITRIPTYLINE HCL [Concomitant]
     Indication: PAIN
     Dosage: AT NIGHT

REACTIONS (1)
  - DIARRHOEA [None]
